FAERS Safety Report 7549760-1 (Version None)
Quarter: 2011Q2

REPORT INFORMATION
  Report Type: 
  Country: None (occurrence: None)
  Receive Date: 20110615
  Receipt Date: 20070531
  Transmission Date: 20111010
  Serious: Yes (Death)
  Sender: FDA-Public Use
  Company Number: PHFR2005GB01557

PATIENT
  Sex: Female

DRUGS (8)
  1. CLOZAPINE [Suspect]
     Indication: SCHIZOPHRENIA
     Dosage: 125 MG, QD
     Route: 048
     Dates: start: 20050408
  2. OPIOIDS [Suspect]
  3. BENZODIAZEPINES [Concomitant]
     Route: 065
  4. LODINE [Concomitant]
     Route: 065
  5. LANSOPRAZOLE [Concomitant]
     Route: 065
  6. LOFEPRAMINE [Concomitant]
     Route: 065
  7. LORAZEPAM [Concomitant]
     Dosage: UNK, PRN
     Route: 065
  8. CLONAZEPAM [Concomitant]

REACTIONS (4)
  - COMA [None]
  - LOSS OF CONSCIOUSNESS [None]
  - HYPOXIC-ISCHAEMIC ENCEPHALOPATHY [None]
  - OVERDOSE [None]
